FAERS Safety Report 9647310 (Version 1)
Quarter: 2013Q4

REPORT INFORMATION
  Report Type: Spontaneous
  Country: US (occurrence: US)
  Receive Date: 20131027
  Receipt Date: 20131027
  Transmission Date: 20140711
  Serious: Yes (Other)
  Sender: FDA-Public Use
  Company Number: US-NAPPMUNDI-USA-2013-0106901

PATIENT
  Age: 25 Year
  Sex: Male

DRUGS (4)
  1. OXYCODONE HCL CR TABLETS (SIMILAR TO NDA 22-272) [Suspect]
     Indication: DRUG ABUSE
     Route: 048
  2. ADDERALL [Suspect]
     Indication: DRUG ABUSE
     Route: 048
  3. MARIJUANA [Suspect]
     Indication: SUBSTANCE ABUSE
     Route: 055
  4. ALCOHOL [Suspect]
     Indication: SUBSTANCE ABUSE
     Route: 048

REACTIONS (2)
  - Substance abuse [Unknown]
  - Overdose [Recovered/Resolved]
